FAERS Safety Report 7472664-X (Version None)
Quarter: 2011Q2

REPORT INFORMATION
  Report Type: 
  Country: None (occurrence: None)
  Receive Date: 20110511
  Receipt Date: 20110504
  Transmission Date: 20111010
  Serious: Yes (Death, Other)
  Sender: FDA-Public Use
  Company Number: GB-GENZYME-FLUD-1001124

PATIENT
  Age: 44 Month

DRUGS (6)
  1. TREOSULFAN [Suspect]
     Indication: BONE MARROW CONDITIONING REGIMEN
  2. FLUDARA [Suspect]
     Indication: IMMUNODEFICIENCY CONGENITAL
  3. TREOSULFAN [Suspect]
     Indication: LYMPHOHISTIOCYTOSIS
     Dosage: 42 G/M2, QDX3
     Route: 065
  4. TREOSULFAN [Suspect]
     Indication: IMMUNODEFICIENCY CONGENITAL
  5. FLUDARA [Suspect]
     Indication: LYMPHOHISTIOCYTOSIS
     Dosage: 150 MG/M2, UNK
     Route: 065
  6. FLUDARA [Suspect]
     Indication: BONE MARROW CONDITIONING REGIMEN

REACTIONS (3)
  - MYELODYSPLASTIC SYNDROME [None]
  - ACUTE MYELOID LEUKAEMIA [None]
  - DEATH [None]
